FAERS Safety Report 12176873 (Version 1)
Quarter: 2016Q1

REPORT INFORMATION
  Report Type: Spontaneous
  Country: US (occurrence: US)
  Receive Date: 20160314
  Receipt Date: 20160314
  Transmission Date: 20160526
  Serious: Yes (Other)
  Sender: FDA-Public Use
  Company Number: US-ELI_LILLY_AND_COMPANY-US201603001916

PATIENT
  Sex: Male

DRUGS (4)
  1. HUMULIN N [Suspect]
     Active Substance: INSULIN HUMAN
     Indication: TYPE 1 DIABETES MELLITUS
     Dosage: 54 U, QD
     Route: 065
     Dates: start: 2010
  2. HUMULIN R [Suspect]
     Active Substance: INSULIN HUMAN
     Indication: TYPE 1 DIABETES MELLITUS
     Dosage: 54-60 UNITS DAILY
     Route: 065
     Dates: start: 201602
  3. HUMULIN N [Suspect]
     Active Substance: INSULIN HUMAN
     Dosage: 54 U, QD
     Route: 065
     Dates: start: 201602
  4. HUMULIN R [Suspect]
     Active Substance: INSULIN HUMAN
     Dosage: 54-60 UNITS DAILY
     Route: 065

REACTIONS (2)
  - Retinopathy [Not Recovered/Not Resolved]
  - Retinal detachment [Not Recovered/Not Resolved]
